FAERS Safety Report 13881029 (Version 7)
Quarter: 2018Q3

REPORT INFORMATION
  Report Type: Spontaneous
  Country: JP (occurrence: JP)
  Receive Date: 20170818
  Receipt Date: 20180730
  Transmission Date: 20181010
  Serious: Yes (Death, Other)
  Sender: FDA-Public Use
  Company Number: JP-009507513-1707JPN002123J

PATIENT
  Age: 77 Year
  Sex: Male
  Weight: 45 kg

DRUGS (4)
  1. BELSOMRA [Concomitant]
     Active Substance: SUVOREXANT
     Dosage: 15.0 MG, QD
     Route: 048
  2. KEYTRUDA [Suspect]
     Active Substance: PEMBROLIZUMAB
     Indication: LUNG ADENOCARCINOMA
     Dosage: 200 MG, Q3W
     Route: 041
     Dates: start: 20170512, end: 20170718
  3. URIEF [Concomitant]
     Active Substance: SILODOSIN
     Dosage: 4.0 MG, BID
     Route: 048
  4. MAGMITT [Concomitant]
     Active Substance: MAGNESIUM OXIDE
     Indication: PROPHYLAXIS
     Dosage: 500 MG, TID
     Route: 048

REACTIONS (3)
  - Erythema [Recovering/Resolving]
  - Pyrexia [Recovered/Resolved]
  - Pneumonia aspiration [Fatal]

NARRATIVE: CASE EVENT DATE: 20170602
